FAERS Safety Report 8220140-9 (Version None)
Quarter: 2012Q1

REPORT INFORMATION
  Report Type: 
  Country: None (occurrence: None)
  Receive Date: 20120320
  Receipt Date: 20120307
  Transmission Date: 20120608
  Serious: Yes (Other)
  Sender: FDA-Public Use
  Company Number: US-ELI_LILLY_AND_COMPANY-US201203003179

PATIENT
  Sex: Male

DRUGS (2)
  1. HUMALOG [Suspect]
     Indication: TYPE 2 DIABETES MELLITUS
     Dosage: UNK, PRN
  2. HUMALOG [Suspect]
     Dosage: UNK, PRN

REACTIONS (4)
  - BLINDNESS [None]
  - UNDERDOSE [None]
  - MACULAR DEGENERATION [None]
  - DEAFNESS [None]
